FAERS Safety Report 8401414-5 (Version None)
Quarter: 2012Q2

REPORT INFORMATION
  Report Type: 
  Country: None (occurrence: None)
  Receive Date: 20120601
  Receipt Date: 20120529
  Transmission Date: 20120825
  Serious: Yes (Other)
  Sender: FDA-Public Use
  Company Number: PHEH2012US010958

PATIENT
  Sex: Female

DRUGS (1)
  1. AREDIA [Suspect]
     Indication: LUNG CANCER METASTATIC
     Dosage: 90 MG, QMO
     Route: 042
     Dates: start: 20000401, end: 20011001

REACTIONS (1)
  - ORAL CAVITY FISTULA [None]
